FAERS Safety Report 6182044-5 (Version None)
Quarter: 2009Q2

REPORT INFORMATION
  Report Type: 
  Country: None (occurrence: None)
  Receive Date: 20090507
  Receipt Date: 20090310
  Transmission Date: 20091009
  Serious: Yes (Other)
  Sender: FDA-Public Use
  Company Number: GB-ABBOTT-08P-167-0441387-00

PATIENT
  Sex: Female

DRUGS (5)
  1. HUMIRA [Suspect]
     Indication: ANKYLOSING SPONDYLITIS
     Route: 058
     Dates: start: 20071231, end: 20090301
  2. LITHIUM CARBONATE [Concomitant]
     Indication: BIPOLAR DISORDER
     Route: 048
  3. TRAZODONE HCL [Concomitant]
     Indication: BIPOLAR DISORDER
     Route: 048
  4. FENTANYL [Concomitant]
     Indication: BIPOLAR DISORDER
     Route: 048
  5. COD PO4 [Concomitant]
     Indication: BIPOLAR DISORDER
     Route: 048

REACTIONS (8)
  - ALOPECIA [None]
  - BIPOLAR DISORDER [None]
  - DIZZINESS [None]
  - HEADACHE [None]
  - MIGRAINE [None]
  - MOOD SWINGS [None]
  - SUICIDAL IDEATION [None]
  - VERTIGO [None]
